FAERS Safety Report 8546751-9 (Version None)
Quarter: 2012Q3

REPORT INFORMATION
  Report Type: 
  Country: None (occurrence: None)
  Receive Date: 20120727
  Receipt Date: 20120202
  Transmission Date: 20120928
  Serious: No
  Sender: FDA-Public Use
  Company Number: US-ASTRAZENECA-2012SE07543

PATIENT
  Age: 25 Year
  Sex: Female

DRUGS (3)
  1. PROZAC [Concomitant]
  2. SEROQUEL XR [Suspect]
     Indication: DEPRESSION
     Dosage: 50MG, BID
     Route: 048
  3. SEROQUEL XR [Suspect]
     Indication: DECREASED APPETITE
     Dosage: 50MG, BID
     Route: 048

REACTIONS (2)
  - OFF LABEL USE [None]
  - HEADACHE [None]
